FAERS Safety Report 10279936 (Version 1)
Quarter: 2014Q3

REPORT INFORMATION
  Report Type: Spontaneous
  Country: US (occurrence: None)
  Receive Date: 20140701
  Receipt Date: 20140701
  Transmission Date: 20150326
  Serious: No
  Sender: FDA-Public Use
  Company Number: None

PATIENT
  Age: 69 Year
  Sex: Male
  Weight: 70.31 kg

DRUGS (24)
  1. CARDVEDILOL [Concomitant]
  2. NATTOKINASE [Concomitant]
     Active Substance: NATTOKINASE
  3. METOPROLOL [Suspect]
     Active Substance: METOPROLOL
     Indication: BLOOD PRESSURE INCREASED
     Dosage: ONE TABLET THRE TIMES A DAY AT 8 HOUR INTERVALS BY MOUTH
     Route: 048
     Dates: start: 20140624, end: 20140624
  4. KCL ER [Concomitant]
  5. FISH OIL [Concomitant]
     Active Substance: FISH OIL
  6. BENAZEPRIL [Concomitant]
     Active Substance: BENAZEPRIL\BENAZEPRIL HYDROCHLORIDE
  7. CHLORTHALIDONE. [Concomitant]
     Active Substance: CHLORTHALIDONE
  8. OMEPRAZOLE. [Concomitant]
     Active Substance: OMEPRAZOLE
  9. ATORVASTATIN [Concomitant]
     Active Substance: ATORVASTATIN
  10. FLECAINIDE [Concomitant]
     Active Substance: FLECAINIDE
  11. VITAMIN E [Concomitant]
     Active Substance: .ALPHA.-TOCOPHEROL
  12. METOPROLOL [Suspect]
     Active Substance: METOPROLOL
     Indication: HEART RATE ABNORMAL
     Dosage: ONE TABLET THRE TIMES A DAY AT 8 HOUR INTERVALS BY MOUTH
     Route: 048
     Dates: start: 20140624, end: 20140624
  13. BACLOFEN. [Concomitant]
     Active Substance: BACLOFEN
  14. B100 [Concomitant]
  15. DIPYRIDAMOLE. [Concomitant]
     Active Substance: DIPYRIDAMOLE
  16. ASA [Concomitant]
     Active Substance: ASPIRIN
  17. CASCARA SAGRADA [Concomitant]
     Active Substance: FRANGULA PURSHIANA BARK
  18. GLUCOSAMINE/CHONDROITIN [Concomitant]
  19. CLONAZEPAM. [Concomitant]
     Active Substance: CLONAZEPAM
  20. CALCIUM [Concomitant]
     Active Substance: CALCIUM
  21. METOPROLOL [Concomitant]
     Active Substance: METOPROLOL
  22. COENZYME Q10 [Concomitant]
     Active Substance: UBIDECARENONE
  23. MULTIVITAMIN [Concomitant]
     Active Substance: VITAMINS
  24. VITAMIN C [Concomitant]
     Active Substance: ASCORBIC ACID

REACTIONS (5)
  - Heart rate increased [None]
  - Blood pressure systolic increased [None]
  - Product quality issue [None]
  - Arrhythmia [None]
  - Tachycardia [None]

NARRATIVE: CASE EVENT DATE: 20140625
